FAERS Safety Report 6447444-4 (Version None)
Quarter: 2009Q4

REPORT INFORMATION
  Report Type: 
  Country: None (occurrence: None)
  Receive Date: 20091119
  Receipt Date: 20091116
  Transmission Date: 20100525
  Serious: Yes (Death, Hospitalization)
  Sender: FDA-Public Use
  Company Number: DE-WYE-G04783809

PATIENT
  Age: 20 Year
  Sex: Female

DRUGS (1)
  1. TAZOCIN [Suspect]
     Route: 042
     Dates: start: 20081013, end: 20081023

REACTIONS (3)
  - PNEUMONIA ASPIRATION [None]
  - RENAL FAILURE [None]
  - SEPTIC SHOCK [None]
